FAERS Safety Report 12802630 (Version 2)
Quarter: 2016Q4

REPORT INFORMATION
  Report Type: Spontaneous
  Country: US (occurrence: US)
  Receive Date: 20161003
  Receipt Date: 20161010
  Transmission Date: 20170207
  Serious: Yes (Hospitalization, Disabling)
  Sender: FDA-Public Use
  Company Number: US-BAYER-2016-185258

PATIENT
  Age: 63 Year
  Sex: Female

DRUGS (13)
  1. GABAPENTIN. [Concomitant]
     Active Substance: GABAPENTIN
  2. VITAMIN K [Concomitant]
     Active Substance: PHYTONADIONE
     Route: 042
  3. PREDNISONE. [Concomitant]
     Active Substance: PREDNISONE
  4. FUROSEMIDE. [Concomitant]
     Active Substance: FUROSEMIDE
  5. IOHEXOL [Concomitant]
     Active Substance: IOHEXOL
     Dosage: 240 CONTRAST
  6. METOPROLOL. [Concomitant]
     Active Substance: METOPROLOL
  7. METHYLPREDNISOLONE ACETATE. [Concomitant]
     Active Substance: METHYLPREDNISOLONE ACETATE
     Dosage: 80 MG, UNK
  8. ENOXAPARIN [Interacting]
     Active Substance: ENOXAPARIN
     Dosage: UNK, BID
  9. ACETYLSALICYLIC ACID({=100 MG) [Suspect]
     Active Substance: ASPIRIN
     Indication: CEREBROVASCULAR ACCIDENT PROPHYLAXIS
     Dosage: 81 MG, QD
  10. WARFARIN [Interacting]
     Active Substance: WARFARIN
     Dosage: 5 MG, QD
  11. MIDAZOLAM [Concomitant]
     Active Substance: MIDAZOLAM\MIDAZOLAM HYDROCHLORIDE
     Dosage: 01 MG, UNK
     Route: 042
  12. AMIODARONE [Concomitant]
     Active Substance: AMIODARONE
  13. FENTANYL. [Concomitant]
     Active Substance: FENTANYL
     Dosage: 50 ?G, UNK

REACTIONS (8)
  - Paraplegia [Not Recovered/Not Resolved]
  - Spinal cord compression [None]
  - Hypoaesthesia [Not Recovered/Not Resolved]
  - Anal incontinence [Not Recovered/Not Resolved]
  - Labelled drug-drug interaction medication error [None]
  - Drug administration error [None]
  - Urinary incontinence [Not Recovered/Not Resolved]
  - Spinal epidural haematoma [None]
